FAERS Safety Report 23158286 (Version 1)
Quarter: 2023Q4

REPORT INFORMATION
  Report Type: Spontaneous
  Country: TW (occurrence: TW)
  Receive Date: 20231108
  Receipt Date: 20231108
  Transmission Date: 20240110
  Serious: Yes (Other)
  Sender: FDA-Public Use
  Company Number: TW-AMGEN-TWNSP2023197146

PATIENT

DRUGS (3)
  1. PROLIA [Suspect]
     Active Substance: DENOSUMAB
     Indication: Osteoporosis
     Dosage: 60 MILLIGRAM, Q6MO
     Route: 058
  2. CALCIUM [Concomitant]
     Active Substance: CALCIUM
     Indication: Mineral supplementation
     Dosage: MORE THAN OR EQUAL TO 1000 MILLIGRAM (FOR AT LEAST 4 DAYS IN A WEEK), QD
  3. VITAMIN D [Concomitant]
     Active Substance: VITAMIN D NOS
     Indication: Vitamin supplementation
     Dosage: MORE THAN OR EQUAL TO 800 IU (FOR AT LEAST 4 DAYS IN A WEEK), QD

REACTIONS (3)
  - Pathological fracture [Unknown]
  - Gingival pain [Unknown]
  - Rash [Unknown]
